FAERS Safety Report 15464412 (Version 6)
Quarter: 2019Q2

REPORT INFORMATION
  Report Type: Report from Study
  Country: US (occurrence: US)
  Receive Date: 20181004
  Receipt Date: 20190516
  Transmission Date: 20190711
  Serious: Yes (Hospitalization, Other)
  Sender: FDA-Public Use
  Company Number: US-PUMA BIOTECHNOLOGY, LTD.-2018US008743

PATIENT

DRUGS (5)
  1. IBRANCE [Concomitant]
     Active Substance: PALBOCICLIB
     Indication: BREAST CANCER FEMALE
  2. LETROZOLE. [Concomitant]
     Active Substance: LETROZOLE
     Indication: BREAST CANCER FEMALE
  3. NERLYNX [Suspect]
     Active Substance: NERATINIB
     Indication: BREAST CANCER METASTATIC
  4. NERLYNX [Suspect]
     Active Substance: NERATINIB
     Indication: BREAST CANCER FEMALE
     Dosage: 240 MG, DAILY
     Route: 048
     Dates: start: 20180814, end: 20190422
  5. NERLYNX [Suspect]
     Active Substance: NERATINIB
     Indication: HUMAN EPIDERMAL GROWTH FACTOR RECEPTOR NEGATIVE

REACTIONS (18)
  - Abdominal discomfort [Unknown]
  - Abdominal distension [Unknown]
  - Hypertension [Unknown]
  - Off label use [Unknown]
  - Neuropathy peripheral [Unknown]
  - Fatigue [Recovering/Resolving]
  - Diarrhoea [Recovering/Resolving]
  - Tachycardia [Unknown]
  - Asthenia [Unknown]
  - Cough [Unknown]
  - Nausea [Recovering/Resolving]
  - Human epidermal growth factor receptor negative [Unknown]
  - Pain [Unknown]
  - Blood iron decreased [Unknown]
  - Hypoxia [Unknown]
  - Disease progression [Unknown]
  - Flatulence [Unknown]
  - Product dose omission [Unknown]

NARRATIVE: CASE EVENT DATE: 2018
